FAERS Safety Report 23135239 (Version 2)
Quarter: 2023Q4

REPORT INFORMATION
  Report Type: Spontaneous
  Country: AU (occurrence: AU)
  Receive Date: 20231101
  Receipt Date: 20231115
  Transmission Date: 20240110
  Serious: Yes (Death)
  Sender: FDA-Public Use
  Company Number: AU-NAPPMUNDI-GBR-2023-0111841

PATIENT
  Age: 36 Year
  Sex: Female

DRUGS (10)
  1. MORPHINE SULFATE [Suspect]
     Active Substance: MORPHINE SULFATE
     Indication: Product used for unknown indication
     Dosage: UNK
     Route: 065
     Dates: end: 2015
  2. BACLOFEN [Suspect]
     Active Substance: BACLOFEN
     Indication: Alcoholism
     Dosage: LOW DOSES
     Route: 065
     Dates: start: 201509
  3. BACLOFEN [Suspect]
     Active Substance: BACLOFEN
     Dosage: TITRATED UP TO A MAXIMUM OF 75 MG PER DAY.
     Route: 065
  4. CITALOPRAM HYDROBROMIDE [Suspect]
     Active Substance: CITALOPRAM HYDROBROMIDE
     Indication: Depression
     Dosage: 20 MILLIGRAM, DAILY
     Route: 065
  5. QUETIAPINE [Suspect]
     Active Substance: QUETIAPINE
     Indication: Sleep disorder
     Dosage: UNK
     Route: 065
  6. QUETIAPINE [Suspect]
     Active Substance: QUETIAPINE
     Dosage: 2 TABLETS
     Route: 065
     Dates: start: 20151225
  7. CODEINE [Suspect]
     Active Substance: CODEINE
     Indication: Product used for unknown indication
     Dosage: UNK
     Route: 065
  8. NORDAZEPAM [Suspect]
     Active Substance: NORDAZEPAM
     Indication: Withdrawal syndrome
     Dosage: UNK
     Route: 065
  9. OXAZEPAM [Suspect]
     Active Substance: OXAZEPAM
     Indication: Product used for unknown indication
     Dosage: UNK
     Route: 065
  10. TEMAZEPAM [Suspect]
     Active Substance: TEMAZEPAM
     Indication: Product used for unknown indication
     Dosage: UNK
     Route: 065

REACTIONS (2)
  - Overdose [Fatal]
  - Injury [Fatal]

NARRATIVE: CASE EVENT DATE: 20151201
